FAERS Safety Report 9188083 (Version 1)
Quarter: 2013Q1

REPORT INFORMATION
  Report Type: Spontaneous
  Country: FR (occurrence: FR)
  Receive Date: 20130325
  Receipt Date: 20130325
  Transmission Date: 20140127
  Serious: Yes (Death)
  Sender: FDA-Public Use
  Company Number: FR-GLAXOSMITHKLINE-B0875308A

PATIENT
  Age: 58 None
  Sex: Female
  Weight: 63 kg

DRUGS (9)
  1. ZOPHREN [Suspect]
     Indication: PREMEDICATION
     Route: 042
     Dates: start: 20120814, end: 20120817
  2. ARACYTINE [Suspect]
     Indication: ACUTE MYELOID LEUKAEMIA
     Dosage: 40MG PER DAY
     Route: 037
     Dates: start: 20120813, end: 20120813
  3. METHOTREXATE [Suspect]
     Indication: ACUTE MYELOID LEUKAEMIA
     Dosage: 15MG PER DAY
     Route: 037
     Dates: start: 20120813, end: 20120813
  4. CYTARABINE [Suspect]
     Indication: ACUTE MYELOID LEUKAEMIA
     Dosage: 4980MG PER DAY
     Route: 042
     Dates: start: 20120814, end: 20120819
  5. EMEND [Suspect]
     Indication: PREMEDICATION
     Dosage: 125MG PER DAY
     Route: 048
     Dates: start: 20120814, end: 20120818
  6. VENLAFAXINE [Suspect]
     Indication: PRODUCT USED FOR UNKNOWN INDICATION
     Dosage: 75MG PER DAY
     Route: 048
     Dates: start: 20120814, end: 20120821
  7. ALPRAZOLAM [Suspect]
     Indication: PRODUCT USED FOR UNKNOWN INDICATION
     Dosage: .5MG PER DAY
     Route: 048
     Dates: start: 20120705, end: 20120828
  8. ACUPAN [Suspect]
     Indication: PRODUCT USED FOR UNKNOWN INDICATION
     Dosage: 1INJ PER DAY
     Route: 042
     Dates: start: 20120818
  9. DAUNORUBICINE [Concomitant]
     Indication: ACUTE MYELOID LEUKAEMIA
     Dates: start: 20120702

REACTIONS (10)
  - Sepsis [Fatal]
  - Bone marrow failure [Fatal]
  - Status epilepticus [Fatal]
  - Encephalopathy [Fatal]
  - Coma [Fatal]
  - Cerebellar syndrome [Fatal]
  - Multi-organ failure [Fatal]
  - Colitis [Fatal]
  - Cholecystitis acute [Fatal]
  - Liver abscess [Fatal]
